FAERS Safety Report 6314473-0 (Version None)
Quarter: 2009Q3

REPORT INFORMATION
  Report Type: 
  Country: None (occurrence: None)
  Receive Date: 20090817
  Receipt Date: 20090805
  Transmission Date: 20100115
  Serious: Yes (Death)
  Sender: FDA-Public Use
  Company Number: 2009002385

PATIENT
  Age: 53 Year
  Sex: Male
  Weight: 57.5 kg

DRUGS (6)
  1. ERLOTINIB HYDROCHLORIDE [Suspect]
     Indication: LUNG SQUAMOUS CELL CARCINOMA STAGE UNSPECIFIED
     Dosage: 150 MG, QD, ORAL
     Route: 048
     Dates: start: 20090706, end: 20090720
  2. PREDNISOLONE [Concomitant]
  3. LANSOPRAZOLE [Concomitant]
  4. MAGMITT [Concomitant]
  5. NAIXEN [Concomitant]
  6. GASTER D [Concomitant]

REACTIONS (3)
  - EXSANGUINATION [None]
  - SHOCK [None]
  - TUMOUR HAEMORRHAGE [None]
